FAERS Safety Report 5370797-5 (Version None)
Quarter: 2007Q2

REPORT INFORMATION
  Report Type: 
  Country: None (occurrence: None)
  Receive Date: 20070626
  Receipt Date: 20070619
  Transmission Date: 20071010
  Serious: Yes (Hospitalization)
  Sender: FDA-Public Use
  Company Number: B0476078A

PATIENT
  Age: 57 Year
  Sex: Male

DRUGS (4)
  1. AVANDIA [Suspect]
     Dosage: 4MG PER DAY
     Route: 065
     Dates: start: 20070304, end: 20070610
  2. INSULIN MIXTARD [Concomitant]
     Route: 058
  3. DIAMICRON [Concomitant]
     Route: 048
  4. UNKNOWN [Concomitant]
     Indication: HYPERTENSION

REACTIONS (5)
  - ANGINA UNSTABLE [None]
  - CHEST PAIN [None]
  - CORONARY ARTERIAL STENT INSERTION [None]
  - DYSPNOEA [None]
  - PAIN IN EXTREMITY [None]
